FAERS Safety Report 12716850 (Version 2)
Quarter: 2019Q4

REPORT INFORMATION
  Report Type: Spontaneous
  Country: UA (occurrence: UA)
  Receive Date: 20160906
  Receipt Date: 20191217
  Transmission Date: 20200122
  Serious: Yes (Death, Hospitalization)
  Sender: FDA-Public Use
  Company Number: UA-TEVA-687659ISR

PATIENT
  Age: 36 Year
  Sex: Female

DRUGS (6)
  1. METHOTREXATE-TEVA [Suspect]
     Active Substance: METHOTREXATE
     Indication: ECTOPIC PREGNANCY
     Dosage: 100 MILLIGRAM DAILY;
     Route: 030
     Dates: start: 20160625, end: 20160625
  2. SERRATA [Concomitant]
     Dosage: 3 DOSAGE FORMS DAILY;
     Route: 048
     Dates: start: 20160630, end: 20160705
  3. LACTOVIT [Concomitant]
     Dosage: 2 DOSAGE FORMS DAILY;
     Route: 048
     Dates: start: 20160625, end: 20160705
  4. METHOTREXATE-TEVA [Suspect]
     Active Substance: METHOTREXATE
     Dosage: 50 MILLIGRAM DAILY;
     Route: 030
     Dates: start: 20160630, end: 20160630
  5. LIDAZA [Concomitant]
     Dosage: 64 IU (INTERNATIONAL UNIT) DAILY;
     Route: 030
     Dates: start: 20160625, end: 20160705
  6. VALERIANA [Concomitant]
     Active Substance: VALERIAN
     Dosage: 3 DOSAGE FORMS DAILY;
     Route: 048
     Dates: start: 20160624, end: 20160705

REACTIONS (16)
  - Bone marrow failure [Fatal]
  - Sepsis [Fatal]
  - Thrombocytopenia [Fatal]
  - Acute respiratory distress syndrome [Fatal]
  - Cardiac arrest [Fatal]
  - Uterine haemorrhage [Fatal]
  - Epiglottitis [Fatal]
  - Colitis [Fatal]
  - Leukopenia [Fatal]
  - Maternal exposure during pregnancy [Unknown]
  - Abortion induced incomplete [Unknown]
  - Agranulocytosis [Fatal]
  - Pancytopenia [Fatal]
  - Conjunctival haemorrhage [Fatal]
  - Stomatitis necrotising [Fatal]
  - Gingivitis [Fatal]

NARRATIVE: CASE EVENT DATE: 20160627
